FAERS Safety Report 15843548 (Version 1)
Quarter: 2019Q1

REPORT INFORMATION
  Report Type: Spontaneous
  Country: DE (occurrence: DE)
  Receive Date: 20190118
  Receipt Date: 20190118
  Transmission Date: 20190417
  Serious: Yes (Hospitalization, Other)
  Sender: FDA-Public Use
  Company Number: DE-GALDERMA-DE18029532

PATIENT
  Age: 5 Year
  Sex: Female
  Weight: 15 kg

DRUGS (5)
  1. VITAMIN D [Concomitant]
     Active Substance: CHOLECALCIFEROL
     Indication: VITAMIN D DEFICIENCY
     Dates: start: 20180731
  2. MIRVASO [Suspect]
     Active Substance: BRIMONIDINE TARTRATE
     Indication: ICHTHYOSIS
  3. SKIN CARE CREAM [Concomitant]
     Indication: ICHTHYOSIS
     Dosage: WHOLE SKIN EXCEPT RIGHT SIDE OF FACE AND RIGHT ARM
     Route: 061
     Dates: start: 20180717
  4. MIRVASO [Suspect]
     Active Substance: BRIMONIDINE TARTRATE
     Indication: ERYTHEMA
     Route: 061
     Dates: start: 20180801, end: 20180801
  5. ELIDEL [Concomitant]
     Active Substance: PIMECROLIMUS
     Indication: ICHTHYOSIS
     Dosage: RIGHT SIDE OF FACE AND RIGHT ARM
     Route: 061
     Dates: start: 20180724

REACTIONS (6)
  - Somnolence [Recovered/Resolved]
  - Arrhythmia [Recovered/Resolved]
  - Product administered to patient of inappropriate age [Recovered/Resolved]
  - Intentional product use issue [Recovered/Resolved]
  - Off label use [Recovered/Resolved]
  - Bradycardia [Recovered/Resolved]

NARRATIVE: CASE EVENT DATE: 20180719
